FAERS Safety Report 6018048-2 (Version None)
Quarter: 2008Q4

REPORT INFORMATION
  Report Type: 
  Country: None (occurrence: None)
  Receive Date: 20081223
  Receipt Date: 20080818
  Transmission Date: 20090506
  Serious: Yes (Other)
  Sender: FDA-Public Use
  Company Number: US-SOLVAY-00208002091

PATIENT
  Age: 5 Year
  Sex: Male
  Weight: 42.1 kg

DRUGS (2)
  1. ANDROGEL [Suspect]
     Indication: ACCIDENTAL EXPOSURE
     Dosage: DAILY DOSE: 5 GRAM(S)
     Route: 062
     Dates: start: 20060901
  2. ANDROGEL [Suspect]
     Dosage: DAILY DOSE: 10 GRAM(S)
     Route: 062
     Dates: end: 20070101

REACTIONS (5)
  - AGGRESSION [None]
  - BONE DISORDER [None]
  - EPIPHYSES PREMATURE FUSION [None]
  - PRECOCIOUS PUBERTY [None]
  - SEXUAL DYSFUNCTION [None]
